FAERS Safety Report 5777963-5 (Version None)
Quarter: 2008Q2

REPORT INFORMATION
  Report Type: 
  Country: None (occurrence: None)
  Receive Date: 20080617
  Receipt Date: 20080617
  Transmission Date: 20081010
  Serious: Yes (Other)
  Sender: FDA-Public Use
  Company Number: None

PATIENT
  Sex: Female
  Weight: 88.9 kg

DRUGS (3)
  1. METHYLENE BLUE 1%  10MG/ML  10ML VIAL  AMERICAN REGENT [Suspect]
     Indication: BIOPSY LYMPH GLAND
  2. METHYLENE BLUE 1%  10MG/ML  10ML VIAL  AMERICAN REGENT [Suspect]
     Indication: BREAST CANCER
  3. METHYLENE BLUE 1%  10MG/ML  10ML VIAL  AMERICAN REGENT [Suspect]

REACTIONS (2)
  - SKIN BURNING SENSATION [None]
  - SKIN EXFOLIATION [None]
